FAERS Safety Report 16064970 (Version 3)
Quarter: 2019Q3

REPORT INFORMATION
  Report Type: Spontaneous
  Country: CZ (occurrence: CZ)
  Receive Date: 20190313
  Receipt Date: 20190816
  Transmission Date: 20191004
  Serious: Yes (Death, Hospitalization, Other)
  Sender: FDA-Public Use
  Company Number: PHHY2019CZ053061

PATIENT
  Age: 84 Year
  Sex: Male

DRUGS (2)
  1. MEKINIST [Suspect]
     Active Substance: TRAMETINIB DIMETHYL SULFOXIDE
     Indication: METASTATIC MALIGNANT MELANOMA
     Dosage: 2 MG, QD (1-0-0)
     Route: 065
     Dates: start: 20161128
  2. TAFINLAR [Suspect]
     Active Substance: DABRAFENIB MESYLATE
     Indication: METASTATIC MALIGNANT MELANOMA
     Dosage: 75 MG, BID (2-0-2)
     Route: 065
     Dates: start: 20160806

REACTIONS (19)
  - Squamous cell carcinoma [Recovering/Resolving]
  - Basal cell carcinoma [Unknown]
  - Vomiting [Unknown]
  - Headache [Recovered/Resolved]
  - Metastases to central nervous system [Unknown]
  - Second primary malignancy [Unknown]
  - Malignant neoplasm progression [Unknown]
  - Aphasia [Unknown]
  - Thrombocytopenia [Unknown]
  - Vertigo [Recovered/Resolved]
  - Pulmonary mass [Unknown]
  - Speech disorder [Unknown]
  - Rash pruritic [Recovering/Resolving]
  - Spinal osteoarthritis [Unknown]
  - Keratoacanthoma [Recovering/Resolving]
  - Death [Fatal]
  - Pancreatic mass [Unknown]
  - Meningioma [Unknown]
  - Metastatic malignant melanoma [Unknown]

NARRATIVE: CASE EVENT DATE: 201608
